FAERS Safety Report 9839265 (Version 1)
Quarter: 2014Q1

REPORT INFORMATION
  Report Type: Spontaneous
  Country: US (occurrence: None)
  Receive Date: 20140116
  Receipt Date: 20140116
  Transmission Date: 20141002
  Serious: Yes (Hospitalization)
  Sender: FDA-Public Use
  Company Number: AUR-APL-2014-00351

PATIENT
  Age: 57 Year
  Sex: Female

DRUGS (2)
  1. CITALOPRAM [Suspect]
     Indication: PRODUCT USED FOR UNKNOWN INDICATION
     Dosage: UNKNOWN
  2. ACYCLOVIR (ACYCLOVIR) [Concomitant]

REACTIONS (14)
  - Skin erosion [None]
  - Dermatitis bullous [None]
  - Swollen tongue [None]
  - Urticaria [None]
  - Arthralgia [None]
  - Local swelling [None]
  - Fatigue [None]
  - Pyrexia [None]
  - Anorectal disorder [None]
  - Vaginal lesion [None]
  - Pemphigus [None]
  - Pemphigus [None]
  - Alopecia [None]
  - Lupus-like syndrome [None]
